FAERS Safety Report 21331592 (Version 1)
Quarter: 2022Q3

REPORT INFORMATION
  Report Type: Spontaneous
  Country: GB (occurrence: GB)
  Receive Date: 20220914
  Receipt Date: 20220914
  Transmission Date: 20221027
  Serious: Yes (Other)
  Sender: FDA-Public Use
  Company Number: GB-AUROBINDO-AUR-APL-2022-036165

PATIENT
  Sex: Female

DRUGS (1)
  1. TOPIRAMATE [Suspect]
     Active Substance: TOPIRAMATE
     Indication: Idiopathic intracranial hypertension
     Dosage: 50 MILLIGRAM (BD)
     Route: 065
     Dates: start: 202207

REACTIONS (1)
  - Eyelid myokymia [Not Recovered/Not Resolved]

NARRATIVE: CASE EVENT DATE: 20220801
